FAERS Safety Report 8170718-6 (Version None)
Quarter: 2012Q1

REPORT INFORMATION
  Report Type: 
  Country: None (occurrence: None)
  Receive Date: 20120106
  Receipt Date: 20101117
  Transmission Date: 20120608
  Serious: Yes (Hospitalization)
  Sender: FDA-Public Use
  Company Number: US-005386

PATIENT
  Age: 50 Year
  Sex: Female

DRUGS (5)
  1. HUMIRA [Concomitant]
  2. MULTIHANCE [Suspect]
     Indication: PITUITARY TUMOUR BENIGN
     Dosage: 5ML ONCE INTRAVENOUS (NOT OTHERWISE SPECIFIED)
     Route: 042
     Dates: start: 20101020, end: 20101020
  3. MULTIHANCE [Suspect]
     Indication: TINNITUS
     Dosage: 5ML ONCE INTRAVENOUS (NOT OTHERWISE SPECIFIED)
     Route: 042
     Dates: start: 20101020, end: 20101020
  4. MULTIHANCE [Suspect]
     Indication: NUCLEAR MAGNETIC RESONANCE IMAGING BRAIN
     Dosage: 5ML ONCE INTRAVENOUS (NOT OTHERWISE SPECIFIED)
     Route: 042
     Dates: start: 20101020, end: 20101020
  5. ZOCOR [Concomitant]

REACTIONS (2)
  - HEADACHE [None]
  - HYPERTENSION [None]
